FAERS Safety Report 8808904 (Version 3)
Quarter: 2012Q4

REPORT INFORMATION
  Report Type: 
  Country: US (occurrence: US)
  Receive Date: 20120926
  Receipt Date: 20121126
  Transmission Date: 20130627
  Serious: No
  Sender: FDA-Public Use
  Company Number: US-VERTEX PHARMACEUTICAL INC.-2012-021718

PATIENT
  Age: 49 Year
  Sex: Female
  Weight: 128 kg

DRUGS (4)
  1. VX-950 (TELAPREVIR) [Suspect]
     Indication: HEPATITIS C
     Dosage: 750 mg, tid
     Route: 048
     Dates: start: 20120830
  2. PEGASYS [Suspect]
     Indication: HEPATITIS C
     Dosage: 180 ?g, UNK
     Route: 058
     Dates: start: 20120830
  3. RIBAPAK [Concomitant]
     Indication: HEPATITIS C
     Dosage: 600 mg, bid
     Route: 048
     Dates: start: 20120830
  4. RIBAPAK [Concomitant]
     Dosage: 400 UNK, UNK
     Route: 048

REACTIONS (5)
  - Influenza like illness [Unknown]
  - Dry mouth [Unknown]
  - Rash [Unknown]
  - Anaemia [Unknown]
  - Pruritus generalised [Unknown]
